FAERS Safety Report 7406165-1 (Version None)
Quarter: 2011Q2

REPORT INFORMATION
  Report Type: 
  Country: None (occurrence: None)
  Receive Date: 20110401
  Receipt Date: 20110318
  Transmission Date: 20111010
  Serious: Yes (Hospitalization)
  Sender: FDA-Public Use
  Company Number: UTC-005836

PATIENT
  Sex: Female

DRUGS (2)
  1. REMODULIN [Suspect]
     Dosage: 167.04 UG/KG (0.116 UG/KG,1 IN 1 MIN),SUBCUTANEOUS
     Route: 058
     Dates: start: 20030101
  2. OXYGEN (OXYGEN) [Concomitant]

REACTIONS (4)
  - PNEUMONIA [None]
  - INFUSION SITE REACTION [None]
  - SKIN IRRITATION [None]
  - ABSCESS [None]
